FAERS Safety Report 18725275 (Version 1)
Quarter: 2021Q1

REPORT INFORMATION
  Report Type: Report from Study
  Country: KR (occurrence: KR)
  Receive Date: 20210111
  Receipt Date: 20210111
  Transmission Date: 20210419
  Serious: Yes (Death, Other)
  Sender: FDA-Public Use
  Company Number: KR-JNJFOC-20210109348

PATIENT

DRUGS (1)
  1. DARATUMUMAB [Suspect]
     Active Substance: DARATUMUMAB
     Indication: PLASMA CELL MYELOMA
     Route: 065

REACTIONS (25)
  - Bacteraemia [Unknown]
  - Asthenia [Unknown]
  - Lower respiratory tract infection [Unknown]
  - Nausea [Unknown]
  - Hepatic enzyme increased [Unknown]
  - Rash [Unknown]
  - Thrombocytopenia [Not Recovered/Not Resolved]
  - Fatigue [Unknown]
  - Decreased appetite [Unknown]
  - Vomiting [Unknown]
  - Infection [Fatal]
  - Mental disorder [Unknown]
  - Upper respiratory tract infection [Unknown]
  - Renal impairment [Unknown]
  - Neutropenia [Unknown]
  - Infusion related reaction [Unknown]
  - Herpes zoster [Unknown]
  - Urinary tract infection [Unknown]
  - Tumour lysis syndrome [Fatal]
  - Neoplasm malignant [Unknown]
  - Haemorrhage [Unknown]
  - Large intestine infection [Unknown]
  - Obstructive airways disorder [Unknown]
  - Anaemia [Unknown]
  - Diarrhoea [Unknown]
